FAERS Safety Report 25455702 (Version 2)
Quarter: 2025Q3

REPORT INFORMATION
  Report Type: Report from Study
  Country: CN (occurrence: CN)
  Receive Date: 20250619
  Receipt Date: 20250829
  Transmission Date: 20251021
  Serious: Yes (Hospitalization)
  Sender: ROCHE
  Company Number: CN-ROCHE-10000249545

PATIENT
  Age: 83 Year
  Sex: Male
  Weight: 56.8 kg

DRUGS (128)
  1. POLATUZUMAB VEDOTIN [Suspect]
     Active Substance: POLATUZUMAB VEDOTIN
     Indication: Diffuse large B-cell lymphoma
     Dosage: DRUG FREQUENCY: ONCE,
     Route: 042
     Dates: start: 20240808, end: 20240808
  2. POLATUZUMAB VEDOTIN [Suspect]
     Active Substance: POLATUZUMAB VEDOTIN
     Dosage: DRUG FREQUENCY: ONCE,
     Route: 042
     Dates: start: 20240903, end: 20240903
  3. POLATUZUMAB VEDOTIN [Suspect]
     Active Substance: POLATUZUMAB VEDOTIN
     Route: 042
     Dates: start: 20240926, end: 20240926
  4. RITUXIMAB [Suspect]
     Active Substance: RITUXIMAB
     Indication: Diffuse large B-cell lymphoma
     Route: 042
     Dates: start: 20240807, end: 20240807
  5. RITUXIMAB [Suspect]
     Active Substance: RITUXIMAB
     Route: 042
     Dates: start: 20240925, end: 20240925
  6. DOXORUBICIN HYDROCHLORIDE [Suspect]
     Active Substance: DOXORUBICIN HYDROCHLORIDE
     Indication: Diffuse large B-cell lymphoma
     Route: 042
     Dates: start: 20240808, end: 20240808
  7. DOXORUBICIN HYDROCHLORIDE [Suspect]
     Active Substance: DOXORUBICIN HYDROCHLORIDE
     Route: 042
     Dates: start: 20240903, end: 20240903
  8. DOXORUBICIN HYDROCHLORIDE [Suspect]
     Active Substance: DOXORUBICIN HYDROCHLORIDE
     Route: 042
     Dates: start: 20240926, end: 20240926
  9. CYCLOPHOSPHAMIDE [Suspect]
     Active Substance: CYCLOPHOSPHAMIDE
     Indication: Diffuse large B-cell lymphoma
     Route: 042
     Dates: start: 20240808, end: 20240808
  10. CYCLOPHOSPHAMIDE [Suspect]
     Active Substance: CYCLOPHOSPHAMIDE
     Route: 042
     Dates: start: 20240903, end: 20240903
  11. CYCLOPHOSPHAMIDE [Suspect]
     Active Substance: CYCLOPHOSPHAMIDE
     Route: 042
     Dates: start: 20240926, end: 20240926
  12. METHYLPREDNISOLONE [Suspect]
     Active Substance: METHYLPREDNISOLONE
     Indication: Diffuse large B-cell lymphoma
     Route: 042
     Dates: start: 20240808, end: 20240812
  13. PREDNISONE [Suspect]
     Active Substance: PREDNISONE
     Indication: Diffuse large B-cell lymphoma
     Route: 048
     Dates: end: 20240907
  14. PREDNISONE [Suspect]
     Active Substance: PREDNISONE
     Route: 048
     Dates: start: 20240908, end: 20240912
  15. PREDNISONE [Suspect]
     Active Substance: PREDNISONE
     Route: 048
     Dates: start: 20240926, end: 20240930
  16. LENALIDOMIDE [Suspect]
     Active Substance: LENALIDOMIDE
     Indication: Diffuse large B-cell lymphoma
     Route: 048
     Dates: end: 20240912
  17. LENALIDOMIDE [Suspect]
     Active Substance: LENALIDOMIDE
     Route: 048
     Dates: start: 20240926, end: 20241005
  18. METHYLPREDNISOLONE SODIUM SUCCINATE [Concomitant]
     Active Substance: METHYLPREDNISOLONE SODIUM SUCCINATE
     Route: 042
     Dates: start: 20240801, end: 20240807
  19. METHYLPREDNISOLONE SODIUM SUCCINATE [Concomitant]
     Active Substance: METHYLPREDNISOLONE SODIUM SUCCINATE
     Route: 042
     Dates: start: 20240902, end: 20240902
  20. METHYLPREDNISOLONE SODIUM SUCCINATE [Concomitant]
     Active Substance: METHYLPREDNISOLONE SODIUM SUCCINATE
     Route: 042
     Dates: start: 20240925, end: 20240925
  21. METHYLPREDNISOLONE SODIUM SUCCINATE [Concomitant]
     Active Substance: METHYLPREDNISOLONE SODIUM SUCCINATE
     Route: 042
     Dates: start: 20241019, end: 20241019
  22. METHYLPREDNISOLONE SODIUM SUCCINATE [Concomitant]
     Active Substance: METHYLPREDNISOLONE SODIUM SUCCINATE
     Route: 042
     Dates: start: 20241119, end: 20241119
  23. METHYLPREDNISOLONE SODIUM SUCCINATE [Concomitant]
     Active Substance: METHYLPREDNISOLONE SODIUM SUCCINATE
     Route: 042
     Dates: start: 20250416, end: 20250427
  24. OMEPRAZOLE [Concomitant]
     Active Substance: OMEPRAZOLE
     Route: 048
     Dates: start: 20240801, end: 20240812
  25. OMEPRAZOLE [Concomitant]
     Active Substance: OMEPRAZOLE
     Route: 048
     Dates: start: 20240814, end: 202409
  26. OMEPRAZOLE [Concomitant]
     Active Substance: OMEPRAZOLE
     Route: 048
     Dates: start: 20240902, end: 20240902
  27. OMEPRAZOLE [Concomitant]
     Active Substance: OMEPRAZOLE
     Route: 048
     Dates: start: 20240908, end: 20240912
  28. OMEPRAZOLE [Concomitant]
     Active Substance: OMEPRAZOLE
     Route: 042
     Dates: start: 20240924, end: 20240925
  29. OMEPRAZOLE [Concomitant]
     Active Substance: OMEPRAZOLE
     Route: 048
     Dates: start: 20240926, end: 20241005
  30. OMEPRAZOLE [Concomitant]
     Active Substance: OMEPRAZOLE
     Route: 048
     Dates: start: 20241019, end: 20241019
  31. OMEPRAZOLE [Concomitant]
     Active Substance: OMEPRAZOLE
     Route: 048
     Dates: start: 20241020, end: 20241025
  32. OMEPRAZOLE [Concomitant]
     Active Substance: OMEPRAZOLE
     Route: 048
     Dates: start: 20241119, end: 20241124
  33. OMEPRAZOLE [Concomitant]
     Active Substance: OMEPRAZOLE
     Route: 048
     Dates: start: 20241222, end: 20241226
  34. CEFTAZIDIME [Concomitant]
     Active Substance: CEFTAZIDIME
     Route: 042
     Dates: start: 20240801, end: 20240814
  35. CEFTAZIDIME [Concomitant]
     Active Substance: CEFTAZIDIME
     Route: 042
     Dates: start: 20241217, end: 20241222
  36. LACTULOSE [Concomitant]
     Active Substance: LACTULOSE
     Route: 048
     Dates: start: 20240802, end: 20240802
  37. LACTULOSE [Concomitant]
     Active Substance: LACTULOSE
     Route: 048
     Dates: start: 20240905
  38. SODIUM BICARBONATE [Concomitant]
     Active Substance: SODIUM BICARBONATE
     Route: 042
     Dates: start: 20240802, end: 20240812
  39. SODIUM BICARBONATE [Concomitant]
     Active Substance: SODIUM BICARBONATE
     Route: 048
  40. FINASTERIDE [Concomitant]
     Active Substance: FINASTERIDE
     Indication: Benign prostatic hyperplasia
     Route: 048
     Dates: start: 20240806, end: 20240806
  41. FINASTERIDE [Concomitant]
     Active Substance: FINASTERIDE
     Route: 048
     Dates: start: 20240902
  42. PROMETHAZINE [Concomitant]
     Active Substance: PROMETHAZINE HYDROCHLORIDE
     Indication: Vomiting
     Route: 030
     Dates: start: 20240808, end: 20240808
  43. PROMETHAZINE [Concomitant]
     Active Substance: PROMETHAZINE HYDROCHLORIDE
     Route: 030
     Dates: start: 20240902, end: 20240903
  44. PROMETHAZINE [Concomitant]
     Active Substance: PROMETHAZINE HYDROCHLORIDE
     Route: 030
     Dates: start: 20240925, end: 20240926
  45. PROMETHAZINE [Concomitant]
     Active Substance: PROMETHAZINE HYDROCHLORIDE
     Route: 030
     Dates: start: 20241019, end: 20241019
  46. PROMETHAZINE [Concomitant]
     Active Substance: PROMETHAZINE HYDROCHLORIDE
     Route: 030
     Dates: start: 20241119, end: 20241120
  47. PROMETHAZINE [Concomitant]
     Active Substance: PROMETHAZINE HYDROCHLORIDE
     Route: 030
     Dates: start: 20241218, end: 20241218
  48. PROMETHAZINE [Concomitant]
     Active Substance: PROMETHAZINE HYDROCHLORIDE
     Route: 030
     Dates: start: 20241221, end: 20241221
  49. PROMETHAZINE [Concomitant]
     Active Substance: PROMETHAZINE HYDROCHLORIDE
     Route: 030
     Dates: start: 20250416, end: 20250416
  50. PALONOSETRON HYDROCHLORIDE [Concomitant]
     Active Substance: PALONOSETRON HYDROCHLORIDE
     Route: 042
     Dates: start: 20240808, end: 20240808
  51. PALONOSETRON HYDROCHLORIDE [Concomitant]
     Active Substance: PALONOSETRON HYDROCHLORIDE
     Route: 042
     Dates: start: 20241218, end: 20241218
  52. PALONOSETRON HYDROCHLORIDE [Concomitant]
     Active Substance: PALONOSETRON HYDROCHLORIDE
     Route: 042
     Dates: start: 20241221, end: 20241221
  53. PALONOSETRON HYDROCHLORIDE [Concomitant]
     Active Substance: PALONOSETRON HYDROCHLORIDE
     Route: 048
     Dates: start: 20250410, end: 20250413
  54. Pegylated recombinant human granulocyte stimulating factor injection [Concomitant]
     Indication: White blood cell count increased
     Dosage: OTHER ROUTE OF MEDICATION ADMIN: IH
     Route: 050
     Dates: start: 20240809, end: 20240809
  55. Pegylated recombinant human granulocyte stimulating factor injection [Concomitant]
     Indication: Neutrophil count increased
     Route: 058
     Dates: start: 20240902, end: 20240904
  56. Pegylated recombinant human granulocyte stimulating factor injection [Concomitant]
     Indication: Granulocyte count increased
     Route: 030
     Dates: start: 20240926, end: 20240926
  57. Pegylated recombinant human granulocyte stimulating factor injection [Concomitant]
     Dosage: MEDICATION ROUTE: OTHER?OTHER ROUTE OF MEDICATION ADMIN IH
     Dates: start: 20241019, end: 20241019
  58. Pegylated recombinant human granulocyte stimulating factor injection [Concomitant]
     Dosage: MEDICATION ROUTE: OTHER?OTHER ROUTE OF MEDICATION ADMIN IH
     Dates: start: 20241120, end: 20241120
  59. Pegylated recombinant human granulocyte stimulating factor injection [Concomitant]
     Dosage: MEDICATION ROUTE: OTHER?OTHER ROUTE OF MEDICATION ADMIN IH
     Dates: start: 20240418, end: 20241218
  60. Pegylated recombinant human granulocyte stimulating factor injection [Concomitant]
     Dosage: MEDICATION ROUTE: OTHER?OTHER ROUTE OF MEDICATION ADMIN IH
     Dates: start: 20241221, end: 20241221
  61. Pegylated recombinant human granulocyte stimulating factor injection [Concomitant]
     Dosage: MEDICATION ROUTE: OTHER?OTHER ROUTE OF MEDICATION ADMIN IH
     Dates: start: 20250305, end: 20250306
  62. Doxazosin mesylate sustained release tablets [Concomitant]
     Indication: Benign prostatic hyperplasia
     Route: 048
     Dates: start: 20240810, end: 20240901
  63. Doxazosin mesylate sustained release tablets [Concomitant]
     Route: 048
     Dates: start: 20240902
  64. Chlorhexidine gargle compound [Concomitant]
     Dosage: OTHER ROUTE OF MEDICATION ADMIN RINSE THE MOUTH
     Route: 050
     Dates: start: 20240812, end: 20240812
  65. DEXAMETHASONE SODIUM PHOSPHATE [Concomitant]
     Active Substance: DEXAMETHASONE SODIUM PHOSPHATE
     Route: 050
     Dates: start: 20240813, end: 20240813
  66. DEXAMETHASONE SODIUM PHOSPHATE [Concomitant]
     Active Substance: DEXAMETHASONE SODIUM PHOSPHATE
     Dates: start: 20240902, end: 20240902
  67. DEXAMETHASONE SODIUM PHOSPHATE [Concomitant]
     Active Substance: DEXAMETHASONE SODIUM PHOSPHATE
     Route: 029
     Dates: start: 20241018, end: 20241018
  68. DEXAMETHASONE SODIUM PHOSPHATE [Concomitant]
     Active Substance: DEXAMETHASONE SODIUM PHOSPHATE
     Route: 029
     Dates: start: 20241118, end: 20241118
  69. METHOTREXATE [Concomitant]
     Active Substance: METHOTREXATE
     Route: 050
     Dates: start: 20240813, end: 20240813
  70. METHOTREXATE [Concomitant]
     Active Substance: METHOTREXATE
     Dates: start: 20240902, end: 20240902
  71. METHOTREXATE [Concomitant]
     Active Substance: METHOTREXATE
     Route: 029
     Dates: start: 20241018, end: 20241018
  72. METHOTREXATE [Concomitant]
     Active Substance: METHOTREXATE
     Route: 029
     Dates: start: 20241118, end: 20241118
  73. CYTARABINE HYDROCHLORIDE [Concomitant]
     Active Substance: CYTARABINE HYDROCHLORIDE
     Route: 050
     Dates: start: 20240813, end: 20240813
  74. CYTARABINE HYDROCHLORIDE [Concomitant]
     Active Substance: CYTARABINE HYDROCHLORIDE
     Dates: start: 20240902, end: 20240902
  75. CYTARABINE HYDROCHLORIDE [Concomitant]
     Active Substance: CYTARABINE HYDROCHLORIDE
     Route: 029
     Dates: start: 20241018, end: 20241018
  76. CYTARABINE HYDROCHLORIDE [Concomitant]
     Active Substance: CYTARABINE HYDROCHLORIDE
     Route: 029
     Dates: start: 20241118, end: 20241118
  77. LEUCOGEN [Concomitant]
     Active Substance: LEUCOGEN
     Route: 048
     Dates: start: 20240820
  78. Cefaclor extended-release tablets [Concomitant]
     Route: 048
     Dates: start: 20240820
  79. compound paracetamol tablet [Concomitant]
     Route: 048
     Dates: start: 20240903, end: 20240903
  80. compound paracetamol tablet [Concomitant]
     Route: 048
     Dates: start: 20240926, end: 20240926
  81. compound paracetamol tablet [Concomitant]
     Route: 048
     Dates: start: 20241019, end: 20241019
  82. compound paracetamol tablet [Concomitant]
     Route: 048
     Dates: start: 20241120, end: 20241120
  83. compound paracetamol tablet [Concomitant]
     Route: 048
     Dates: start: 20241218, end: 20241218
  84. compound paracetamol tablet [Concomitant]
     Route: 048
     Dates: start: 20250305, end: 20250305
  85. compound paracetamol tablet [Concomitant]
     Route: 048
     Dates: start: 20250310, end: 20250311
  86. compound paracetamol tablet [Concomitant]
     Route: 048
     Dates: start: 20250416, end: 20250419
  87. PALONOSETRON HYDROCHLORIDE [Concomitant]
     Active Substance: PALONOSETRON HYDROCHLORIDE
     Indication: Vomiting
     Route: 042
     Dates: start: 20240903, end: 20240903
  88. PALONOSETRON HYDROCHLORIDE [Concomitant]
     Active Substance: PALONOSETRON HYDROCHLORIDE
     Route: 042
     Dates: start: 20240926, end: 20240926
  89. PALONOSETRON HYDROCHLORIDE [Concomitant]
     Active Substance: PALONOSETRON HYDROCHLORIDE
     Route: 042
     Dates: start: 20241019, end: 20241019
  90. PALONOSETRON HYDROCHLORIDE [Concomitant]
     Active Substance: PALONOSETRON HYDROCHLORIDE
     Route: 042
     Dates: start: 20241120, end: 20241120
  91. ENEMA [PHOSPHORIC ACID SODIUM] [Concomitant]
     Dates: start: 20240804, end: 20240804
  92. ENEMA [PHOSPHORIC ACID SODIUM] [Concomitant]
     Route: 050
     Dates: start: 20240810, end: 20240810
  93. Compound acetaminophen [Concomitant]
     Route: 048
     Dates: start: 20240808, end: 20240808
  94. Bifidobacterium triple live powde [Concomitant]
     Route: 048
     Dates: start: 20240818, end: 20240828
  95. CALCIUM CHLORIDE\POTASSIUM CHLORIDE\SODIUM CHLORIDE\SODIUM LACTATE [Concomitant]
     Active Substance: CALCIUM CHLORIDE\POTASSIUM CHLORIDE\SODIUM CHLORIDE\SODIUM LACTATE
     Route: 042
     Dates: start: 20240818, end: 20240818
  96. ACYCLOVIR [Concomitant]
     Active Substance: ACYCLOVIR
     Route: 048
     Dates: start: 20241217, end: 20241222
  97. Compound Pseudoephedrin Hydrochlorid Tablets [Concomitant]
     Route: 048
     Dates: start: 20241217, end: 20241218
  98. BALOXAVIR MARBOXIL [Concomitant]
     Active Substance: BALOXAVIR MARBOXIL
     Route: 048
     Dates: start: 20241218, end: 20241218
  99. CEFTRIAXONE SODIUM [Concomitant]
     Active Substance: CEFTRIAXONE SODIUM
     Route: 042
     Dates: start: 20250225, end: 20250313
  100. AMBROXOL HYDROCHLORIDE [Concomitant]
     Active Substance: AMBROXOL HYDROCHLORIDE
     Route: 042
     Dates: start: 20250311, end: 20250314
  101. FLURBIPROFEN [Concomitant]
     Active Substance: FLURBIPROFEN
     Dates: start: 20250311, end: 20250317
  102. ALBUMIN HUMAN [Concomitant]
     Active Substance: ALBUMIN HUMAN
     Route: 042
     Dates: start: 20250311, end: 20250313
  103. MONTMORILLONITE [Concomitant]
     Active Substance: MONTMORILLONITE
     Route: 048
     Dates: start: 20250311, end: 20250312
  104. MONTMORILLONITE [Concomitant]
     Active Substance: MONTMORILLONITE
     Route: 048
     Dates: start: 20250417, end: 20250417
  105. CALCIUM CARBONATE\CHOLECALCIFEROL [Concomitant]
     Active Substance: CALCIUM CARBONATE\CHOLECALCIFEROL
     Route: 048
     Dates: start: 20250306, end: 20250311
  106. CETIRIZINE HYDROCHLORIDE [Concomitant]
     Active Substance: CETIRIZINE HYDROCHLORIDE
     Route: 048
     Dates: start: 20250409, end: 20250422
  107. LINEZOLID [Concomitant]
     Active Substance: LINEZOLID
     Route: 042
     Dates: start: 20250410, end: 20250502
  108. FLUDARABINE PHOSPHATE [Concomitant]
     Active Substance: FLUDARABINE PHOSPHATE
     Route: 042
     Dates: start: 20250411, end: 20250413
  109. APREPITANT [Concomitant]
     Active Substance: APREPITANT
     Route: 048
     Dates: start: 20250410, end: 20250411
  110. ESOMEPRAZOLE SODIUM [Concomitant]
     Active Substance: ESOMEPRAZOLE SODIUM
     Route: 042
     Dates: start: 20250411, end: 20250427
  111. SPIRONOLACTONE [Concomitant]
     Active Substance: SPIRONOLACTONE
     Route: 048
     Dates: start: 20250410, end: 20250417
  112. FUROSEMIDE [Concomitant]
     Active Substance: FUROSEMIDE
     Route: 048
     Dates: start: 20250410, end: 20250417
  113. ETHAMSYLATE [Concomitant]
     Active Substance: ETHAMSYLATE
     Dates: start: 20250420, end: 20250427
  114. CASPOFUNGIN ACETATE [Concomitant]
     Active Substance: CASPOFUNGIN ACETATE
     Route: 042
     Dates: start: 20250421, end: 20250502
  115. Human Granulocyte Colony-stimulating Factor Injection [Concomitant]
     Dates: start: 20250421, end: 20250426
  116. SULFAMETHOXAZOLE [Concomitant]
     Active Substance: SULFAMETHOXAZOLE
     Route: 048
     Dates: start: 20250501
  117. FLUTICASONE PROPIONATE [Concomitant]
     Active Substance: FLUTICASONE PROPIONATE
     Dates: start: 20250410
  118. triamcinolone Acetonide and Econazole Nitrate [Concomitant]
     Dates: start: 20250410, end: 20250410
  119. PHENOBARBITAL SODIUM [Concomitant]
     Active Substance: PHENOBARBITAL SODIUM
     Route: 042
     Dates: start: 20250416, end: 20250416
  120. LEVETIRACETAM [Concomitant]
     Active Substance: LEVETIRACETAM
     Route: 048
     Dates: start: 20250416, end: 20250416
  121. SUCCINYLATED GELATIN [Concomitant]
     Active Substance: SUCCINYLATED GELATIN
     Route: 042
     Dates: start: 20250416, end: 20250416
  122. SODIUM GLYCEROPHOSPHATE [Concomitant]
     Active Substance: SODIUM GLYCEROPHOSPHATE
     Route: 042
     Dates: start: 20250421, end: 20250421
  123. VALACYCLOVIR HYDROCHLORIDE [Concomitant]
     Active Substance: VALACYCLOVIR HYDROCHLORIDE
     Route: 048
     Dates: start: 20250501
  124. omeprazole sodium for injection [Concomitant]
  125. CEFUROXIME AXETIL [Concomitant]
     Active Substance: CEFUROXIME AXETIL
  126. CEFOPERAZONE\SULBACTAM [Concomitant]
     Active Substance: CEFOPERAZONE\SULBACTAM
  127. ALBUMIN HUMAN [Concomitant]
     Active Substance: ALBUMIN HUMAN
  128. Tamsulosin Hydrochloride Sustained Release Capsules [Concomitant]

REACTIONS (3)
  - Urinary retention [Not Recovered/Not Resolved]
  - Upper respiratory tract infection [Recovered/Resolved]
  - Weight decreased [Recovered/Resolved]

NARRATIVE: CASE EVENT DATE: 20240901
